FAERS Safety Report 5018617-2 (Version None)
Quarter: 2006Q2

REPORT INFORMATION
  Report Type: 
  Country: None (occurrence: None)
  Receive Date: 20060414
  Receipt Date: 20060105
  Transmission Date: 20061013
  Serious: No
  Sender: FDA-Public Use
  Company Number: 2006SP000075

PATIENT
  Age: 67 Year
  Sex: Male
  Weight: 87.9978 kg

DRUGS (4)
  1. LUNESTA [Suspect]
     Indication: INSOMNIA
     Dosage: 3 MG;ORAL
     Route: 048
     Dates: start: 20051221, end: 20060101
  2. ATORVASTATIN CALCIUM [Concomitant]
  3. ZOLOFT [Concomitant]
  4. SYNTHROID [Concomitant]

REACTIONS (3)
  - DIZZINESS [None]
  - INSOMNIA [None]
  - SOMNOLENCE [None]
